FAERS Safety Report 9544091 (Version 2)
Quarter: 2013Q4

REPORT INFORMATION
  Report Type: Spontaneous
  Country: US (occurrence: US)
  Receive Date: 20130923
  Receipt Date: 20131007
  Transmission Date: 20140711
  Serious: Yes (Death)
  Sender: FDA-Public Use
  Company Number: US-ELI_LILLY_AND_COMPANY-US201309004895

PATIENT
  Age: 79 Year
  Sex: Female
  Weight: 85 kg

DRUGS (17)
  1. ADCIRCA [Suspect]
     Indication: PULMONARY ARTERIAL HYPERTENSION
     Dosage: 40 MG, QD
     Dates: start: 20130424
  2. PYRIDIUM [Concomitant]
     Dosage: 200 MG, PRN
     Route: 048
  3. CYSTEX [Concomitant]
     Dosage: 162 MG, QD
     Route: 048
  4. PREDNISONE [Concomitant]
     Dosage: 5 MG, QD
     Route: 048
  5. LASIX [Concomitant]
     Dosage: 40 MG, TID
     Route: 048
  6. JANUVIA [Concomitant]
     Dosage: 100 MG, QD
     Route: 048
     Dates: end: 20130620
  7. MECLIZINE HCL [Concomitant]
     Dosage: 25 MG, PRN
     Route: 048
     Dates: end: 20130620
  8. ATROVENT [Concomitant]
     Dosage: 2 DF, PRN
     Route: 045
     Dates: end: 20130620
  9. WARFARIN SODIUM [Concomitant]
     Dosage: 2.5 MG, UNKNOWN
     Route: 048
     Dates: end: 20130620
  10. PRAVASTATIN SODIUM [Concomitant]
     Dosage: 40 MG, QD
     Route: 048
  11. PREDNISONE [Concomitant]
     Dosage: 10 MG, UNKNOWN
     Route: 048
     Dates: start: 20120712, end: 20130620
  12. POTASSIUM CHLORIDE [Concomitant]
     Dosage: 10 MEQ, QD
     Route: 048
  13. GLUCAGON [Concomitant]
     Dosage: 1 MG, PRN
  14. CALCIUM + VITAMIN D                /01483701/ [Concomitant]
     Dosage: 600 MG, BID
     Route: 048
  15. FUROSEMIDE [Concomitant]
     Dosage: 40 MG, BID
     Route: 048
  16. ISOSORBIDE MONONITRATE [Concomitant]
     Dosage: 120 MG, QD
     Route: 048
  17. PRAVASTATIN SODIUM [Concomitant]
     Dosage: 40 MG, QD
     Route: 048

REACTIONS (4)
  - Pulmonary fibrosis [Fatal]
  - Respiratory failure [Fatal]
  - Malaise [Unknown]
  - Insomnia [Unknown]
